FAERS Safety Report 8324361-6 (Version None)
Quarter: 2012Q2

REPORT INFORMATION
  Report Type: 
  Country: None (occurrence: None)
  Receive Date: 20120430
  Receipt Date: 20120430
  Transmission Date: 20120825
  Serious: Yes (Other)
  Sender: FDA-Public Use
  Company Number: None

PATIENT
  Age: 25 Year
  Sex: Male
  Weight: 71.4 kg

DRUGS (5)
  1. PAROXETINE [Concomitant]
  2. CIPROFLOXACIN HCL [Concomitant]
  3. AZITHROMYCIN [Suspect]
     Indication: URETHRITIS CHLAMYDIAL
     Dosage: 500MG 2 X1 PO ; 250MG 1 DAY PO
     Route: 048
     Dates: start: 20120413
  4. AZITHROMYCIN [Suspect]
     Indication: URETHRITIS CHLAMYDIAL
     Dosage: 500MG 2 X1 PO ; 250MG 1 DAY PO
     Route: 048
     Dates: start: 20120411
  5. ABILIFY [Concomitant]

REACTIONS (12)
  - VOMITING [None]
  - DIARRHOEA [None]
  - NAUSEA [None]
  - JAUNDICE CHOLESTATIC [None]
  - PYREXIA [None]
  - PAIN [None]
  - FAECES PALE [None]
  - RASH [None]
  - THROAT TIGHTNESS [None]
  - DECREASED APPETITE [None]
  - CHOLURIA [None]
  - DRUG HYPERSENSITIVITY [None]
